FAERS Safety Report 9186353 (Version 1)
Quarter: 2013Q1

REPORT INFORMATION
  Report Type: Spontaneous
  Country: US (occurrence: US)
  Receive Date: 20130325
  Receipt Date: 20130325
  Transmission Date: 20140127
  Serious: Yes (Hospitalization)
  Sender: FDA-Public Use
  Company Number: US-BAYER-2013-034214

PATIENT
  Age: 65 Year
  Sex: Female
  Weight: 86 kg

DRUGS (4)
  1. YAZ [Suspect]
  2. NEXIUM [Concomitant]
  3. CARAFATE [Concomitant]
  4. ZOFRAN [Concomitant]

REACTIONS (2)
  - Hepatic vein thrombosis [None]
  - Portal vein thrombosis [None]
